FAERS Safety Report 11048552 (Version 1)
Quarter: 2015Q2

REPORT INFORMATION
  Report Type: Spontaneous
  Country: TR (occurrence: TR)
  Receive Date: 20150420
  Receipt Date: 20150420
  Transmission Date: 20150821
  Serious: Yes (Other)
  Sender: FDA-Public Use
  Company Number: TR-BAYER-2015-130058

PATIENT
  Age: 69 Year
  Sex: Male

DRUGS (7)
  1. TIROFIBAN [Suspect]
     Active Substance: TIROFIBAN
     Indication: CORONARY ARTERY OCCLUSION
     Dosage: 0.15 ?G/KG/MIN
     Route: 041
  2. METOPROLOL [Concomitant]
     Active Substance: METOPROLOL
     Dosage: DAILY DOSE 50 MG
  3. ATORVASTATIN [Concomitant]
     Active Substance: ATORVASTATIN
     Dosage: DAILY DOSE 20 MG
  4. ACETYLSALICYLIC ACID({=100 MG) [Suspect]
     Active Substance: ASPIRIN
     Dosage: DAILY DOSE 100 MG
  5. CLOPIDOGREL [Suspect]
     Active Substance: CLOPIDOGREL BISULFATE
     Dosage: 300 MG, UNK, LOADING DOSE
  6. UNFRACTIONATED HEPARIN [Suspect]
     Active Substance: HEPARIN SODIUM
     Dosage: 8000 IU, UNK
  7. TIROFIBAN [Suspect]
     Active Substance: TIROFIBAN
     Indication: CORONARY ARTERY THROMBOSIS
     Dosage: 25 ?G/KG, OVER 3 MINUTES
     Route: 040

REACTIONS (5)
  - Coronary artery stenosis [None]
  - Coronary artery occlusion [None]
  - Haemolytic anaemia [Recovered/Resolved]
  - Pyrexia [None]
  - Thrombosis in device [None]
